FAERS Safety Report 4588361-4 (Version None)
Quarter: 2005Q1

REPORT INFORMATION
  Report Type: 
  Country: None (occurrence: None)
  Receive Date: 20050222
  Receipt Date: 20050210
  Transmission Date: 20050727
  Serious: Yes (Other)
  Sender: FDA-Public Use
  Company Number: JP-JNJFOC-20040810131

PATIENT
  Sex: Female

DRUGS (4)
  1. RISPERDAL [Suspect]
     Indication: SCHIZOPHRENIA
     Route: 049
  2. BIPERIDEN HYDROCHLORIDE TAB [Concomitant]
     Indication: PARKINSON'S DISEASE
     Route: 049
     Dates: start: 20031024
  3. ALPRAZOLAM [Concomitant]
     Indication: ANXIETY
     Route: 049
     Dates: start: 20031024
  4. FLUNITRAZEPAM [Concomitant]
     Indication: INSOMNIA
     Route: 049
     Dates: start: 20031024

REACTIONS (3)
  - EOSINOPHIL PERCENTAGE DECREASED [None]
  - MEAN CELL HAEMOGLOBIN INCREASED [None]
  - ZINC SULPHATE TURBIDITY DECREASED [None]
